FAERS Safety Report 8161863-X (Version None)
Quarter: 2012Q1

REPORT INFORMATION
  Report Type: 
  Country: None (occurrence: None)
  Receive Date: 20120224
  Receipt Date: 20110913
  Transmission Date: 20120608
  Serious: No
  Sender: FDA-Public Use
  Company Number: US-BRISTOL-MYERS SQUIBB COMPANY-15945454

PATIENT
  Age: 48 Year
  Sex: Female

DRUGS (3)
  1. ADVAIR DISKUS 100/50 [Concomitant]
  2. METFORMIN HCL [Suspect]
     Indication: DIABETES MELLITUS
     Route: 048
     Dates: start: 20100901, end: 20110301
  3. PROZAC [Concomitant]

REACTIONS (2)
  - MALAISE [None]
  - DIARRHOEA [None]
